FAERS Safety Report 7440655-0 (Version None)
Quarter: 2011Q2

REPORT INFORMATION
  Report Type: 
  Country: None (occurrence: None)
  Receive Date: 20110427
  Receipt Date: 20110419
  Transmission Date: 20111010
  Serious: Yes (Other)
  Sender: FDA-Public Use
  Company Number: US-BAYER-2011-034744

PATIENT
  Sex: Female

DRUGS (2)
  1. DROSPIRENONE AND ETHINYL ESTRADIOL [Suspect]
     Dosage: UNK
     Dates: start: 20080718, end: 20100319
  2. YASMIN [Suspect]
     Dosage: UNK
     Dates: start: 20040404, end: 20080703

REACTIONS (2)
  - GALLBLADDER DISORDER [None]
  - INJURY [None]
